FAERS Safety Report 6620181-9 (Version None)
Quarter: 2010Q1

REPORT INFORMATION
  Report Type: 
  Country: None (occurrence: None)
  Receive Date: 20100308
  Receipt Date: 20100308
  Transmission Date: 20100710
  Serious: Yes (Life-Threatening, Other)
  Sender: FDA-Public Use
  Company Number: None

PATIENT
  Age: 55 Year
  Sex: Female
  Weight: 63.5036 kg

DRUGS (1)
  1. LAMOTRIGINE [Suspect]
     Indication: MOOD SWINGS
     Dosage: 50MG 2 WEEKS, THEN 100MG 1 TIME DAILY
     Dates: start: 20091222, end: 20100130

REACTIONS (3)
  - BURNING SENSATION [None]
  - PRURITUS [None]
  - RASH [None]
